FAERS Safety Report 20108109 (Version 1)
Quarter: 2021Q4

REPORT INFORMATION
  Report Type: Spontaneous
  Country: IN (occurrence: IN)
  Receive Date: 20211124
  Receipt Date: 20211124
  Transmission Date: 20220303
  Serious: Yes (Hospitalization, Other)
  Sender: FDA-Public Use
  Company Number: IN-VALIDUS PHARMACEUTICALS LLC-IN-VDP-2021-014613

PATIENT
  Age: 60 Day
  Sex: Male
  Weight: 5 kg

DRUGS (16)
  1. METOPROLOL TARTRATE [Suspect]
     Active Substance: METOPROLOL TARTRATE
     Indication: Atrial tachycardia
     Dosage: UNK
     Route: 040
  2. METOPROLOL TARTRATE [Suspect]
     Active Substance: METOPROLOL TARTRATE
     Dosage: UNK(INFUSION)
     Route: 065
  3. FUROSEMIDE [Suspect]
     Active Substance: FUROSEMIDE
     Indication: Tachyarrhythmia
     Dosage: UNK
     Route: 065
  4. FUROSEMIDE [Suspect]
     Active Substance: FUROSEMIDE
     Indication: Left ventricular dysfunction
  5. FUROSEMIDE [Suspect]
     Active Substance: FUROSEMIDE
     Indication: Atrial tachycardia
  6. MILRINONE LACTATE [Suspect]
     Active Substance: MILRINONE LACTATE
     Indication: Tachyarrhythmia
     Dosage: UNK (0.5 MCG/KG/MIN)(INFUSION);
     Route: 065
  7. MILRINONE LACTATE [Suspect]
     Active Substance: MILRINONE LACTATE
     Indication: Left ventricular dysfunction
  8. MILRINONE LACTATE [Suspect]
     Active Substance: MILRINONE LACTATE
     Indication: Atrial tachycardia
  9. DIGOXIN [Suspect]
     Active Substance: DIGOXIN
     Indication: Atrial tachycardia
     Dosage: 15 UG/KG(OVER 30 MIN)
     Route: 042
  10. ADENOSINE [Suspect]
     Active Substance: ADENOSINE
     Indication: Atrial tachycardia
     Dosage: UNK
     Route: 065
  11. EPINEPHRINE [Suspect]
     Active Substance: EPINEPHRINE
     Indication: Resuscitation
     Dosage: 0.4 ML (0.4 ML OF 1 IN 10000 DILUTION SINGLE DOSE)
     Route: 065
  12. EPINEPHRINE [Suspect]
     Active Substance: EPINEPHRINE
     Indication: Atrial tachycardia
  13. AMIODARONE HYDROCHLORIDE [Suspect]
     Active Substance: AMIODARONE HYDROCHLORIDE
     Indication: Tachyarrhythmia
     Dosage: 25 UG/KG, QMN
     Route: 065
  14. AMIODARONE HYDROCHLORIDE [Suspect]
     Active Substance: AMIODARONE HYDROCHLORIDE
     Indication: Left ventricular dysfunction
     Dosage: 15 UG/KG, QMN
     Route: 065
  15. AMIODARONE HYDROCHLORIDE [Suspect]
     Active Substance: AMIODARONE HYDROCHLORIDE
     Indication: Atrial tachycardia
  16. SOTALOL HYDROCHLORIDE [Suspect]
     Active Substance: SOTALOL HYDROCHLORIDE
     Indication: Atrial tachycardia
     Dosage: 1 MG/KG
     Route: 065

REACTIONS (2)
  - Bradycardia [Recovering/Resolving]
  - Drug ineffective [Unknown]
